FAERS Safety Report 17582340 (Version 3)
Quarter: 2020Q2

REPORT INFORMATION
  Report Type: Spontaneous
  Country: US (occurrence: US)
  Receive Date: 20200325
  Receipt Date: 20200630
  Transmission Date: 20200713
  Serious: No
  Sender: FDA-Public Use
  Company Number: NVSC2020US084074

PATIENT
  Sex: Female

DRUGS (2)
  1. ONDANSETRON HYDROCHLORIDE. [Suspect]
     Active Substance: ONDANSETRON HYDROCHLORIDE
     Indication: MORNING SICKNESS
     Dosage: 04 MG, EVERY 6 HOURS (Q6H)
     Route: 065
     Dates: start: 20081021, end: 20090228
  2. ZOFRAN ODT [Suspect]
     Active Substance: ONDANSETRON HYDROCHLORIDE
     Indication: MORNING SICKNESS
     Dosage: 04 MG, EVERY 8 HOURS (Q8H)
     Route: 048
     Dates: start: 20081020

REACTIONS (6)
  - Injury [Unknown]
  - Depression [Unknown]
  - Emotional distress [Unknown]
  - Product use in unapproved indication [Unknown]
  - Stress [Unknown]
  - Maternal exposure during pregnancy [Unknown]
